FAERS Safety Report 11975301 (Version 1)
Quarter: 2016Q1

REPORT INFORMATION
  Report Type: Spontaneous
  Country: US (occurrence: US)
  Receive Date: 20160128
  Receipt Date: 20160128
  Transmission Date: 20160526
  Serious: No
  Sender: FDA-Public Use
  Company Number: US-GILEAD-2016-0194756

PATIENT
  Sex: Female

DRUGS (3)
  1. RIBAVIRIN. [Suspect]
     Active Substance: RIBAVIRIN
     Indication: HEPATITIS C
     Dosage: UNK
     Route: 065
     Dates: start: 2014, end: 201411
  2. INTERFERON [Suspect]
     Active Substance: INTERFERON
     Indication: HEPATITIS C
     Dosage: UNK
     Route: 065
     Dates: start: 2014, end: 201411
  3. SOVALDI [Suspect]
     Active Substance: SOFOSBUVIR
     Indication: HEPATITIS C
     Dosage: UNK
     Route: 065
     Dates: start: 2014, end: 201411

REACTIONS (1)
  - Feeling abnormal [Recovered/Resolved]

NARRATIVE: CASE EVENT DATE: 2014
